FAERS Safety Report 6688893-9 (Version None)
Quarter: 2010Q2

REPORT INFORMATION
  Report Type: 
  Country: None (occurrence: None)
  Receive Date: 20100420
  Receipt Date: 20100413
  Transmission Date: 20101027
  Serious: No
  Sender: FDA-Public Use
  Company Number: US-CEPHALON-2010000432

PATIENT
  Sex: Female

DRUGS (4)
  1. FENTORA [Suspect]
     Indication: BACK PAIN
     Route: 002
  2. ACTIQ [Suspect]
     Indication: BACK PAIN
     Route: 002
  3. METHADONE HCL [Concomitant]
  4. DURAGESIC-100 [Concomitant]
     Dates: start: 20050101

REACTIONS (1)
  - DRUG PRESCRIBING ERROR [None]
